FAERS Safety Report 17730484 (Version 1)
Quarter: 2020Q2

REPORT INFORMATION
  Report Type: Report from Study
  Country: MX (occurrence: MX)
  Receive Date: 20200430
  Receipt Date: 20200430
  Transmission Date: 20200714
  Serious: Yes (Other)
  Sender: FDA-Public Use
  Company Number: NVSC2020MX116896

PATIENT
  Age: 66 Year
  Sex: Male
  Weight: 54 kg

DRUGS (1)
  1. VOTRIENT [Suspect]
     Active Substance: PAZOPANIB HYDROCHLORIDE
     Indication: NEOPLASM
     Dosage: 400 MG, Q12H
     Route: 048
     Dates: start: 20200329

REACTIONS (6)
  - Mineral deficiency [Unknown]
  - Malaise [Recovering/Resolving]
  - Seizure [Unknown]
  - Product use in unapproved indication [Unknown]
  - Dependent personality disorder [Unknown]
  - Tumour haemorrhage [Not Recovered/Not Resolved]

NARRATIVE: CASE EVENT DATE: 20200424
